FAERS Safety Report 18475694 (Version 4)
Quarter: 2020Q4

REPORT INFORMATION
  Report Type: Spontaneous
  Country: CA (occurrence: CA)
  Receive Date: 20201106
  Receipt Date: 20201222
  Transmission Date: 20210114
  Serious: Yes (Other)
  Sender: FDA-Public Use
  Company Number: CA-BIOMARINAP-CA-2017-113551

PATIENT
  Age: 43 Year
  Sex: Female
  Weight: 76.4 kg

DRUGS (4)
  1. FLU VACCINE VII [Suspect]
     Active Substance: INFLUENZA VIRUS VACCINE
     Indication: PRODUCT USED FOR UNKNOWN INDICATION
     Route: 065
  2. KUVAN [Suspect]
     Active Substance: SAPROPTERIN DIHYDROCHLORIDE
     Indication: PHENYLKETONURIA
     Dosage: 1500 MG, QD
     Route: 048
     Dates: start: 20110608
  3. KUVAN [Suspect]
     Active Substance: SAPROPTERIN DIHYDROCHLORIDE
     Dosage: 1600 MILLIGRAM, QD
     Route: 048
  4. ROBAXACET [Concomitant]
     Active Substance: ACETAMINOPHEN\METHOCARBAMOL
     Indication: MUSCLE RELAXANT THERAPY

REACTIONS (21)
  - Stress [Recovered/Resolved]
  - Myalgia [Unknown]
  - Spinal instability [Not Recovered/Not Resolved]
  - Muscle spasms [Unknown]
  - Arthritis [Not Recovered/Not Resolved]
  - Nervousness [Recovered/Resolved]
  - Back pain [Not Recovered/Not Resolved]
  - Food craving [Unknown]
  - Bone pain [Unknown]
  - Nausea [Recovered/Resolved]
  - Dysmenorrhoea [Recovered/Resolved]
  - Pain [Recovered/Resolved]
  - Insomnia [Not Recovered/Not Resolved]
  - Somnolence [Recovered/Resolved]
  - Rhinitis allergic [Unknown]
  - Fibromyalgia [Unknown]
  - Pain in extremity [Unknown]
  - Amino acid level increased [Recovered/Resolved]
  - Fatigue [Not Recovered/Not Resolved]
  - Chills [Recovered/Resolved]
  - Anxiety [Unknown]

NARRATIVE: CASE EVENT DATE: 2020
